FAERS Safety Report 7874513-4 (Version None)
Quarter: 2011Q4

REPORT INFORMATION
  Report Type: 
  Country: None (occurrence: None)
  Receive Date: 20111030
  Receipt Date: 20110520
  Transmission Date: 20120403
  Serious: No
  Sender: FDA-Public Use
  Company Number: US-AMGEN-USASP2011026456

PATIENT
  Sex: Female

DRUGS (2)
  1. ENBREL [Suspect]
     Indication: PSORIATIC ARTHROPATHY
     Dosage: 50 MG, UNK
     Dates: start: 20040803
  2. ENBREL [Suspect]
     Indication: PSORIASIS

REACTIONS (4)
  - PSORIASIS [None]
  - DEATH OF RELATIVE [None]
  - STRESS [None]
  - OEDEMA PERIPHERAL [None]
